FAERS Safety Report 4812487-0 (Version None)
Quarter: 2005Q4

REPORT INFORMATION
  Report Type: 
  Country: None (occurrence: None)
  Receive Date: 20051026
  Receipt Date: 20051013
  Transmission Date: 20060501
  Serious: Yes (Death)
  Sender: FDA-Public Use
  Company Number: 2005135573

PATIENT
  Age: 77 Year
  Sex: Male

DRUGS (2)
  1. VFEND [Suspect]
     Indication: BRONCHOPULMONARY ASPERGILLOSIS
     Dosage: 400 MG (200 MG, 2 IN 1 D), ORAL
     Route: 048
     Dates: start: 20050901
  2. PRODIF (FOSFLUCONAZOLE) [Suspect]
     Indication: ILL-DEFINED DISORDER

REACTIONS (4)
  - ANGINA PECTORIS [None]
  - CARDIO-RESPIRATORY ARREST [None]
  - HEADACHE [None]
  - SUDDEN DEATH [None]
